FAERS Safety Report 9017969 (Version 1)
Quarter: 2013Q1

REPORT INFORMATION
  Report Type: Spontaneous
  Country: FR (occurrence: FR)
  Receive Date: 20130118
  Receipt Date: 20130118
  Transmission Date: 20140127
  Serious: Yes (Hospitalization)
  Sender: FDA-Public Use
  Company Number: FR-BRISTOL-MYERS SQUIBB COMPANY-17289455

PATIENT
  Age: 78 Year
  Sex: Male

DRUGS (10)
  1. APROVEL TABS 300 MG [Suspect]
     Route: 048
     Dates: end: 201211
  2. COVERSYL [Suspect]
     Dosage: COVERSYL 4MG SCORED TABLET
     Route: 048
     Dates: end: 201211
  3. KALEORID [Suspect]
     Dosage: 1 DF = KALEORID SR 1000 MG ER TABLET
     Dates: end: 201211
  4. KARDEGIC [Concomitant]
     Dosage: 1 DF = 300 UNITS NOS
  5. INEXIUM [Concomitant]
     Dosage: 1 DF = 20 UNITS NOS
  6. BISOPROLOL [Concomitant]
     Dosage: 1 DF = 5 UNITS NOS
  7. LIPANTHYL [Concomitant]
  8. STILNOX [Concomitant]
  9. TRAMADOL [Concomitant]
     Dosage: 1 DF = 50 UNITS NOS
  10. LYRICA [Concomitant]
     Dosage: 1 DF = 50 UNITS NOS

REACTIONS (3)
  - Hyperkalaemia [Recovered/Resolved]
  - Cardiac disorder [Recovered/Resolved]
  - Tremor [Recovered/Resolved]
